FAERS Safety Report 4269860-1 (Version None)
Quarter: 2004Q1

REPORT INFORMATION
  Report Type: 
  Country: None (occurrence: None)
  Receive Date: 20040112
  Receipt Date: 20040112
  Transmission Date: 20041129
  Serious: Yes (Hospitalization)
  Sender: FDA-Public Use
  Company Number: None

PATIENT
  Age: 67 Year
  Sex: Male

DRUGS (4)
  1. LISINOPRIL [Suspect]
     Indication: HYPERTENSION
     Dosage: 10 MG QD
     Dates: start: 20020101
  2. COMBIVENT [Concomitant]
  3. CIPRO [Concomitant]
  4. SINGULAIR [Concomitant]

REACTIONS (1)
  - HYPERKALAEMIA [None]
